FAERS Safety Report 8163279 (Version 2)
Quarter: 2013Q2

REPORT INFORMATION
  Report Type: Spontaneous
  Country: US (occurrence: None)
  Receive Date: 20110825
  Receipt Date: 20120827
  Transmission Date: 20140414
  Serious: No
  Sender: FDA-Public Use
  Company Number: 331500

PATIENT
  Age: 24 Year
  Sex: Female

DRUGS (4)
  1. VICTOZA [Suspect]
     Indication: TYPE 2 DIABETES MELLITUS
     Dosage: SUBCUTANEOUS
     Route: 058
     Dates: start: 201101, end: 20110622
  2. AMLODIPINE [Concomitant]
  3. PRENATAL VITAMINS (ASCORBIC ACID, BIOTIN,MINERAL NOS, NICOTINIC ACID, RETINOL, TOCOPHEROL, VITAMIN B NOS, VITAMIN D NOS) [Concomitant]
  4. GLYBURIDE (GLIBENCLAMIDE) [Concomitant]

REACTIONS (2)
  - PREGNANCY [None]
  - Ultrasound antenatal screen [None]
